FAERS Safety Report 24293999 (Version 1)
Quarter: 2024Q3

REPORT INFORMATION
  Report Type: Spontaneous
  Country: US (occurrence: None)
  Receive Date: 20240906
  Receipt Date: 20240906
  Transmission Date: 20241017
  Serious: No
  Sender: DOMPE FARMACEUTICI
  Company Number: US-FARMAPROD-202403-1048

PATIENT
  Age: 68 Year
  Sex: Female

DRUGS (12)
  1. OXERVATE [Suspect]
     Active Substance: CENEGERMIN-BKBJ
     Indication: Neurotrophic keratopathy
     Route: 047
     Dates: start: 20240319
  2. PROGESTERONE [Concomitant]
     Active Substance: PROGESTERONE
  3. HERBALS\HONEY [Concomitant]
     Active Substance: HERBALS\HONEY
  4. CEQUA [Concomitant]
     Active Substance: CYCLOSPORINE
  5. GABAPENTIN [Concomitant]
     Active Substance: GABAPENTIN
  6. PANTOPRAZOLE SODIUM [Concomitant]
     Active Substance: PANTOPRAZOLE SODIUM
  7. TIZANIDINE HYDROCHLORIDE [Concomitant]
     Active Substance: TIZANIDINE HYDROCHLORIDE
  8. B COMPLEX WITH VITAMIN C [Concomitant]
  9. ATENOLOL [Concomitant]
     Active Substance: ATENOLOL
  10. VITAMIN D3 [Concomitant]
     Active Substance: CHOLECALCIFEROL
  11. FLUOXETINE HYDROCHLORIDE [Concomitant]
     Active Substance: FLUOXETINE HYDROCHLORIDE
  12. SYNTHROID [Concomitant]
     Active Substance: LEVOTHYROXINE SODIUM

REACTIONS (2)
  - Periorbital pain [Unknown]
  - Eye pain [Unknown]

NARRATIVE: CASE EVENT DATE: 20240301
